FAERS Safety Report 8959080 (Version 3)
Quarter: 2013Q1

REPORT INFORMATION
  Report Type: Report from Study
  Country: US (occurrence: US)
  Receive Date: 20121211
  Receipt Date: 20130201
  Transmission Date: 20140127
  Serious: Yes (Other)
  Sender: FDA-Public Use
  Company Number: US-VERTEX PHARMACEUTICAL INC.-2012-020839

PATIENT
  Sex: Male

DRUGS (7)
  1. VX-950 (TELAPREVIR) [Suspect]
     Indication: HEPATITIS C
     Dosage: 750 MG, TID
     Route: 048
     Dates: start: 20120612, end: 201208
  2. RIBASPHERE [Suspect]
     Indication: HEPATITIS C
     Dosage: 600 MG, BID
     Route: 048
     Dates: start: 20120612
  3. RIBASPHERE [Suspect]
     Dosage: 1000 MG, QD
     Route: 048
     Dates: end: 201212
  4. PEGASYS [Suspect]
     Indication: HEPATITIS C
     Dosage: 180 ?G, QW
     Route: 058
     Dates: start: 20120612, end: 201212
  5. METFORMIN HCL [Concomitant]
     Dosage: 500 MG, QD
  6. LISINOPRIL [Concomitant]
     Dosage: 10 MG, QD
  7. FLONASE [Concomitant]
     Dosage: 0.05 %, QD
     Route: 048

REACTIONS (5)
  - Haemoglobin decreased [Unknown]
  - Haematocrit decreased [Unknown]
  - Fatigue [Unknown]
  - Rash generalised [Unknown]
  - Drug ineffective [Unknown]
